FAERS Safety Report 24270854 (Version 1)
Quarter: 2024Q3

REPORT INFORMATION
  Report Type: Spontaneous
  Country: PT (occurrence: PT)
  Receive Date: 20240831
  Receipt Date: 20240831
  Transmission Date: 20241017
  Serious: Yes (Hospitalization, Other)
  Sender: AUROBINDO
  Company Number: PT-AUROBINDO-AUR-APL-2024-042203

PATIENT
  Age: 32 Year
  Sex: Female

DRUGS (1)
  1. AMOXICILLIN\CLAVULANIC ACID [Suspect]
     Active Substance: AMOXICILLIN\CLAVULANIC ACID
     Indication: Tooth abscess
     Dosage: UNK
     Route: 065

REACTIONS (1)
  - Drug ineffective [Unknown]
